FAERS Safety Report 9880546 (Version 3)
Quarter: 2014Q1

REPORT INFORMATION
  Report Type: Spontaneous
  Country: US (occurrence: US)
  Receive Date: 20140207
  Receipt Date: 20140328
  Transmission Date: 20141002
  Serious: Yes (Hospitalization)
  Sender: FDA-Public Use
  Company Number: US-JNJFOC-20140118638

PATIENT
  Age: 60 Year
  Sex: Male

DRUGS (9)
  1. RISPERDAL CONSTA [Suspect]
     Indication: SCHIZOPHRENIA, PARANOID TYPE
     Route: 030
  2. ASPIRIN [Concomitant]
     Route: 065
  3. LIPITOR [Concomitant]
     Route: 065
  4. VITAMIN D [Concomitant]
     Route: 065
  5. HYDROXYZINE [Concomitant]
     Route: 065
  6. METFORMIN [Concomitant]
     Route: 065
  7. METOPROLOL [Concomitant]
     Route: 065
  8. PRILOSEC [Concomitant]
     Route: 065
  9. PERCOCET [Concomitant]
     Route: 065

REACTIONS (4)
  - Coronary artery bypass [Recovering/Resolving]
  - Chest pain [Recovered/Resolved]
  - Drug administration error [Unknown]
  - Drug dose omission [Unknown]
